FAERS Safety Report 11150557 (Version 4)
Quarter: 2015Q4

REPORT INFORMATION
  Report Type: Spontaneous
  Country: ES (occurrence: ES)
  Receive Date: 20150601
  Receipt Date: 20151001
  Transmission Date: 20160304
  Serious: Yes (Death, Congenital Anomaly, Other)
  Sender: FDA-Public Use
  Company Number: ES-UCBSA-2015017221

PATIENT
  Age: 31 Year
  Sex: Female

DRUGS (5)
  1. KEPPRA [Suspect]
     Active Substance: LEVETIRACETAM
     Dosage: 250 MG, 2X/DAY (BID)
  2. FYCOMPA [Suspect]
     Active Substance: PERAMPANEL
     Indication: COMPLEX PARTIAL SEIZURES
     Dosage: 2 MG, ONCE DAILY (QD)
     Route: 048
     Dates: start: 201403
  3. PAROXETINE [Concomitant]
     Active Substance: PAROXETINE\PAROXETINE HYDROCHLORIDE
     Indication: DEPRESSION
     Dosage: 20 MG / DAILY
     Dates: start: 201405
  4. KEPPRA [Suspect]
     Active Substance: LEVETIRACETAM
     Indication: COMPLEX PARTIAL SEIZURES
     Dosage: 500 MG, 2X/DAY (BID)
     Dates: start: 2012
  5. KEPPRA [Suspect]
     Active Substance: LEVETIRACETAM
     Dosage: 500 MG, 2X/DAY (BID)
     Dates: end: 20150214

REACTIONS (7)
  - Anxiety [Recovered/Resolved]
  - Obsessive-compulsive disorder [Unknown]
  - Tuberous sclerosis [Unknown]
  - Seizure [Recovered/Resolved]
  - Apathy [Recovered/Resolved]
  - Completed suicide [Fatal]
  - Depression [Unknown]

NARRATIVE: CASE EVENT DATE: 2012
